FAERS Safety Report 17011918 (Version 2)
Quarter: 2019Q4

REPORT INFORMATION
  Report Type: Report from Study
  Country: CH (occurrence: CH)
  Receive Date: 20191108
  Receipt Date: 20191218
  Transmission Date: 20200122
  Serious: Yes (Death)
  Sender: FDA-Public Use
  Company Number: CH-JNJFOC-20191045346

PATIENT
  Age: 49 Year
  Sex: Female
  Weight: 83 kg

DRUGS (6)
  1. REDORMIN                           /01229902/ [Concomitant]
     Active Substance: REMIFENTANIL HYDROCHLORIDE
     Indication: DEPRESSION
     Route: 048
     Dates: start: 20191009
  2. BRINTELLIX [Concomitant]
     Active Substance: VORTIOXETINE HYDROBROMIDE
     Indication: DEPRESSION
     Route: 048
     Dates: start: 201905, end: 20191009
  3. QUILONUM RETARD [Concomitant]
     Active Substance: LITHIUM CARBONATE
     Indication: DEPRESSION
     Dosage: 450 MILLIGRAM, 1.5-0-1.5
     Route: 048
  4. BRINTELLIX [Concomitant]
     Active Substance: VORTIOXETINE HYDROBROMIDE
     Dosage: 10 MILLIGRAM, 1.5 DOSE ONCE DAILY
     Route: 048
     Dates: start: 20191010
  5. SPRAVATO [Suspect]
     Active Substance: ESKETAMINE
     Dates: start: 20191017
  6. SPRAVATO [Suspect]
     Active Substance: ESKETAMINE
     Indication: DEPRESSION
     Dates: start: 20191015

REACTIONS (2)
  - Toxicity to various agents [Fatal]
  - Completed suicide [Fatal]

NARRATIVE: CASE EVENT DATE: 20191022
